FAERS Safety Report 8327569-9 (Version None)
Quarter: 2012Q2

REPORT INFORMATION
  Report Type: 
  Country: None (occurrence: None)
  Receive Date: 20120502
  Receipt Date: 20120423
  Transmission Date: 20120825
  Serious: Yes (Hospitalization)
  Sender: FDA-Public Use
  Company Number: US-BAYER-2011-107412

PATIENT
  Age: 32 Year
  Sex: Female

DRUGS (9)
  1. LAMICTAL [Concomitant]
     Indication: CONVULSION
     Dosage: 150 MG, DAILY
     Dates: start: 20040101
  2. DOXYCYCLINE [Concomitant]
     Indication: POST PROCEDURAL INFECTION
     Dosage: 100 MG, BID
     Dates: start: 20090601
  3. YASMIN [Suspect]
     Indication: CONTRACEPTION
     Dosage: UNK
     Route: 048
     Dates: start: 20080301, end: 20080701
  4. SYNTHROID [Concomitant]
     Indication: THYROID DISORDER
     Dosage: .75 MCG/ DAILY
     Dates: start: 20070101
  5. AMOXICILLIN [Concomitant]
     Dosage: 500 MG, UNK
     Dates: start: 20090609
  6. PROPOXYPHENE HCL AND ACETAMINOPHEN [Concomitant]
     Dosage: UNK
     Dates: start: 20090609
  7. DROSPIRENONE AND ETHINYL ESTRADIOL [Suspect]
     Indication: CONTRACEPTION
     Dosage: UNK
     Route: 048
     Dates: start: 20080701, end: 20090601
  8. HYDROCODONE BITARTRATE AND ACETAMINOPHEN [Concomitant]
     Dosage: UNK
     Dates: start: 20090623
  9. M.V.I. [Concomitant]

REACTIONS (4)
  - GALLBLADDER DISORDER [None]
  - SCAR [None]
  - PAIN [None]
  - CHOLECYSTITIS CHRONIC [None]
